FAERS Safety Report 7362095-5 (Version None)
Quarter: 2011Q1

REPORT INFORMATION
  Report Type: 
  Country: None (occurrence: None)
  Receive Date: 20110318
  Receipt Date: 20110315
  Transmission Date: 20110831
  Serious: Yes (Other)
  Sender: FDA-Public Use
  Company Number: JP-BAYER-2011-023689

PATIENT
  Age: 59 Year
  Sex: Female

DRUGS (3)
  1. VINCRISTINE SULFATE [Suspect]
     Indication: MALIGNANT MELANOMA
     Dosage: 0.5-0.8M2 PER DAY
  2. DACARBAZINE [Suspect]
     Indication: MALIGNANT MELANOMA
     Dosage: 80-140/M2 PER DAY ON THE FIRST TO FIFTH DAYS
  3. NIMUSTINE HYDROCHLORIDE [Suspect]
     Indication: MALIGNANT MELANOMA
     Dosage: 50-80/M2 PER DAY ON THE SECOND AND FOURTH DAYS

REACTIONS (1)
  - COLON CANCER [None]
